FAERS Safety Report 4964210-7 (Version None)
Quarter: 2006Q2

REPORT INFORMATION
  Report Type: 
  Country: None (occurrence: None)
  Receive Date: 20060406
  Receipt Date: 20060324
  Transmission Date: 20061013
  Serious: Yes (Other)
  Sender: FDA-Public Use
  Company Number: PHBS2006CH04627

PATIENT
  Age: 45 Year
  Sex: Male

DRUGS (2)
  1. PAMIDRONATE DISODIUM [Suspect]
     Indication: OSTEOPOROSIS
     Dosage: 30 MG, Q3MO
     Route: 042
  2. ZOLEDRONATE [Suspect]
     Indication: OSTEOPOROSIS
     Dosage: 4 MG, QMO
     Route: 042

REACTIONS (3)
  - BONE DISORDER [None]
  - OSTEONECROSIS [None]
  - SEQUESTRECTOMY [None]
